FAERS Safety Report 16071662 (Version 1)
Quarter: 2019Q1

REPORT INFORMATION
  Report Type: Spontaneous
  Country: US (occurrence: US)
  Receive Date: 20190314
  Receipt Date: 20190314
  Transmission Date: 20190418
  Serious: No
  Sender: FDA-Public Use
  Company Number: US-TEVA-2019-US-1015695

PATIENT

DRUGS (1)
  1. TREXALL [Suspect]
     Active Substance: METHOTREXATE SODIUM
     Route: 065
     Dates: start: 200204, end: 200209

REACTIONS (1)
  - Alopecia [Unknown]
